FAERS Safety Report 5898335-9 (Version None)
Quarter: 2008Q3

REPORT INFORMATION
  Report Type: 
  Country: None (occurrence: None)
  Receive Date: 20080925
  Receipt Date: 20070919
  Transmission Date: 20090109
  Serious: No
  Sender: FDA-Public Use
  Company Number: A0683016A

PATIENT
  Age: 66 Year
  Sex: Female

DRUGS (4)
  1. WELLBUTRIN XL [Suspect]
     Dosage: 150MG PER DAY
     Route: 048
     Dates: start: 20070917
  2. PAXIL [Concomitant]
  3. DUONEB [Concomitant]
  4. AMBIEN [Concomitant]

REACTIONS (1)
  - VOMITING [None]
